FAERS Safety Report 7635358-3 (Version None)
Quarter: 2011Q3

REPORT INFORMATION
  Report Type: 
  Country: None (occurrence: None)
  Receive Date: 20110726
  Receipt Date: 20101015
  Transmission Date: 20111222
  Serious: No
  Sender: FDA-Public Use
  Company Number: US-GLAXOSMITHKLINE-A0887094A

PATIENT
  Age: 46 Year
  Sex: Female

DRUGS (7)
  1. ASPIRIN [Concomitant]
  2. ANTIDEPRESSANT [Concomitant]
  3. DIOVAN [Concomitant]
  4. ATROPINE [Concomitant]
  5. ZOLOFT [Concomitant]
  6. EXTINA [Suspect]
     Indication: INFECTION
     Dosage: 1APP TWICE PER DAY
     Route: 061
     Dates: start: 20100927, end: 20101014
  7. LISINOPRIL [Concomitant]

REACTIONS (3)
  - CONDITION AGGRAVATED [None]
  - LOCALISED INFECTION [None]
  - FLAT AFFECT [None]
